FAERS Safety Report 20465480 (Version 2)
Quarter: 2022Q2

REPORT INFORMATION
  Report Type: Other
  Country: US (occurrence: US)
  Receive Date: 20220212
  Receipt Date: 20220406
  Transmission Date: 20220721
  Serious: Yes (Hospitalization)
  Sender: FDA-Public Use
  Company Number: US-NEUROCRINE BIOSCIENCES INC.-2022NBI00673

PATIENT

DRUGS (22)
  1. INGREZZA [Suspect]
     Active Substance: VALBENAZINE
     Indication: Tardive dyskinesia
     Dosage: 80 MILLIGRAM, QD
     Route: 048
     Dates: start: 2021
  2. PROAIR HFA [Concomitant]
     Active Substance: ALBUTEROL SULFATE
     Indication: Dyspnoea
     Dosage: 180 MICROGRAM EVERY 4 HOURS
     Dates: start: 20211208
  3. NORVASC [Concomitant]
     Active Substance: AMLODIPINE BESYLATE
     Dosage: 10 MILLIGRAM, QD
     Route: 048
     Dates: start: 20210525
  4. ZYRTEC [Concomitant]
     Active Substance: CETIRIZINE HYDROCHLORIDE
     Dosage: 10 MILLIGRAM, QD
     Route: 048
     Dates: start: 20210526
  5. VITAMIN D3 [Concomitant]
     Active Substance: CHOLECALCIFEROL
     Dosage: 5000 INTERNATIONAL UNIT, QD
     Route: 048
  6. EPIPEN [Concomitant]
     Active Substance: EPINEPHRINE
     Dosage: 0.3 MILLIGRAM, PRN
     Route: 030
     Dates: start: 20200925
  7. COLACE [Concomitant]
     Active Substance: DOCUSATE SODIUM
     Dosage: 50 MILLIGRAM, BID
     Route: 048
     Dates: start: 20211208
  8. FLONASE [Concomitant]
     Active Substance: FLUTICASONE PROPIONATE
     Dosage: UNK
     Dates: start: 20210526
  9. TRELEGY ELLIPTA [Concomitant]
     Active Substance: FLUTICASONE FUROATE\UMECLIDINIUM BROMIDE\VILANTEROL TRIFENATATE
     Dosage: 1 PUFF, QD
     Dates: start: 20211208
  10. NEURONTIN [Concomitant]
     Active Substance: GABAPENTIN
     Dosage: 400 MILLIGRAM, TID
     Route: 048
     Dates: start: 20220211
  11. LOPID [Concomitant]
     Active Substance: GEMFIBROZIL
     Dosage: 600 MILLIGRAM, QD
     Route: 048
     Dates: start: 20211208
  12. NOVOLOG [Concomitant]
     Active Substance: INSULIN ASPART
     Dosage: INJECT 10 UNITS WITH LUNCH AND 20 UNITS WITH DINNER, BID
     Route: 058
     Dates: start: 20210810
  13. LEVEMIR [Concomitant]
     Active Substance: INSULIN DETEMIR
     Dosage: 45 ARBITRARY UNITS, QHS
     Route: 058
     Dates: start: 20211208
  14. PRINIVIL [Concomitant]
     Active Substance: LISINOPRIL
     Dosage: 40 MILLIGRAM, QD
     Route: 048
     Dates: start: 20210707
  15. MEVACOR [Concomitant]
     Active Substance: LOVASTATIN
     Dosage: 20 MILLIGRAM, QHS
     Route: 048
     Dates: start: 20210707
  16. GLUCOPHAGE [Concomitant]
     Active Substance: METFORMIN HYDROCHLORIDE
     Dosage: 1000 MILLIGRAM, BID
     Route: 048
  17. VITAMINS [Concomitant]
     Active Substance: VITAMINS
     Dosage: UNK UNK, QD
     Route: 048
  18. NAPROSYN [Concomitant]
     Active Substance: NAPROXEN
     Dosage: 250 MILLIGRAM, BID
     Route: 048
     Dates: start: 20211208
  19. PRILOSEC [Concomitant]
     Active Substance: OMEPRAZOLE MAGNESIUM
     Dosage: 20 MILLIGRAM, QD
     Route: 048
  20. MIRALAX [Concomitant]
     Active Substance: POLYETHYLENE GLYCOL 3350
     Dosage: UNK
     Route: 048
  21. SODIUM CHLORIDE [Concomitant]
     Active Substance: SODIUM CHLORIDE
     Dosage: UNK
     Route: 045
  22. EFFEXOR XR [Concomitant]
     Active Substance: VENLAFAXINE HYDROCHLORIDE
     Dosage: 150 MILLIGRAM, QD
     Route: 048
     Dates: start: 20220203

REACTIONS (3)
  - Hospitalisation [Recovered/Resolved]
  - SARS-CoV-2 test positive [Unknown]
  - Dyspnoea exertional [Unknown]
